FAERS Safety Report 9504327 (Version 2)
Quarter: 2013Q3

REPORT INFORMATION
  Report Type: Spontaneous
  Country: FR (occurrence: FR)
  Receive Date: 20130906
  Receipt Date: 20130916
  Transmission Date: 20140515
  Serious: Yes (Life-Threatening, Other)
  Sender: FDA-Public Use
  Company Number: FR-BAXTER-2013BAX034100

PATIENT
  Age: 60 Year
  Sex: Male

DRUGS (23)
  1. ENDOXAN 2000 MG, LYOPHILISAT POUR SOLUTION INJECTABLE [Suspect]
     Indication: LUNG NEOPLASM MALIGNANT
     Route: 051
     Dates: start: 20120131, end: 20120312
  2. BACTRIM FORTE [Suspect]
     Indication: LUNG INFECTION
     Route: 048
     Dates: start: 20120202, end: 20120208
  3. BACTRIM FORTE [Suspect]
     Indication: PNEUMOCYSTIS JIROVECII PNEUMONIA
  4. ONCOVIN [Suspect]
     Indication: LUNG NEOPLASM MALIGNANT
     Route: 051
     Dates: start: 20120131, end: 20120312
  5. DOXORUBICINE HYDROCHLORIDE [Suspect]
     Indication: LUNG NEOPLASM MALIGNANT
     Route: 051
     Dates: start: 20120131, end: 20120312
  6. GEMZAR [Suspect]
     Indication: CHEMOTHERAPY
     Route: 065
     Dates: start: 20120119
  7. TAXOL [Suspect]
     Indication: CHEMOTHERAPY
     Route: 065
     Dates: start: 20120119
  8. G-CSF [Concomitant]
     Indication: PRODUCT USED FOR UNKNOWN INDICATION
     Route: 065
     Dates: start: 20120202, end: 20120207
  9. PRIMPERAN [Concomitant]
     Indication: DRUG THERAPY
     Route: 065
  10. DAFALGAN [Concomitant]
     Indication: DRUG THERAPY
     Route: 065
  11. TAHOR [Concomitant]
     Indication: DRUG THERAPY
     Route: 065
  12. INEXIUM [Concomitant]
     Indication: DRUG THERAPY
     Route: 065
  13. MUCOMYST [Concomitant]
     Indication: DRUG THERAPY
     Route: 065
  14. CORTANCYL [Concomitant]
     Indication: DRUG THERAPY
     Route: 065
  15. FORLAX [Concomitant]
     Indication: DRUG THERAPY
     Route: 065
  16. IMOVANE [Concomitant]
     Indication: DRUG THERAPY
     Route: 065
  17. SPECIAFOLDINE [Concomitant]
     Indication: DRUG THERAPY
     Route: 065
  18. VERSATIS [Concomitant]
     Indication: DRUG THERAPY
     Route: 065
  19. INNOHEP [Concomitant]
     Indication: DRUG THERAPY
     Route: 065
  20. NOVOMIX [Concomitant]
     Indication: DRUG THERAPY
     Route: 065
  21. SYMBICORT [Concomitant]
     Indication: DRUG THERAPY
     Route: 065
  22. OXYCONTIN [Concomitant]
     Indication: DRUG THERAPY
     Route: 065
  23. BINOCRIT [Concomitant]
     Indication: DRUG THERAPY
     Route: 065

REACTIONS (2)
  - Bone marrow failure [Recovered/Resolved]
  - Pneumocystis jirovecii pneumonia [Unknown]
